FAERS Safety Report 16655782 (Version 1)
Quarter: 2019Q3

REPORT INFORMATION
  Report Type: Report from Study
  Country: CA (occurrence: CA)
  Receive Date: 20190801
  Receipt Date: 20190801
  Transmission Date: 20191004
  Serious: Yes (Death)
  Sender: FDA-Public Use
  Company Number: CA-ROCHE-2368279

PATIENT
  Age: 59 Year
  Sex: Male

DRUGS (16)
  1. LORAZEPAM. [Concomitant]
     Active Substance: LORAZEPAM
     Indication: OFF LABEL USE
     Dosage: 100UG
     Route: 065
  2. METOCLOPRAMIDE HCL [Concomitant]
     Active Substance: METOCLOPRAMIDE HYDROCHLORIDE
     Indication: OFF LABEL USE
     Route: 065
  3. MORPHINE SULF [Concomitant]
     Active Substance: MORPHINE SULFATE
     Indication: OFF LABEL USE
     Route: 065
  4. TECENTRIQ [Suspect]
     Active Substance: ATEZOLIZUMAB
     Indication: SMALL CELL LUNG CANCER EXTENSIVE STAGE
     Route: 042
     Dates: start: 20190708, end: 20190708
  5. METOPROLOL. [Concomitant]
     Active Substance: METOPROLOL
     Indication: OFF LABEL USE
     Route: 065
  6. SENNOSIDES. [Concomitant]
     Active Substance: SENNOSIDES
     Indication: OFF LABEL USE
     Route: 065
  7. TECENTRIQ [Suspect]
     Active Substance: ATEZOLIZUMAB
     Indication: OFF LABEL USE
  8. APO-CLOPIDOGREL [Concomitant]
     Active Substance: CLOPIDOGREL BISULFATE
     Indication: OFF LABEL USE
     Route: 065
  9. MORPHINE SULFATE. [Concomitant]
     Active Substance: MORPHINE SULFATE
     Indication: OFF LABEL USE
     Route: 065
  10. TRAZODONE HYDROCHLORIDE. [Concomitant]
     Active Substance: TRAZODONE HYDROCHLORIDE
     Indication: OFF LABEL USE
     Route: 065
  11. SALBUTAMOL TEVA [Concomitant]
     Active Substance: ALBUTEROL
     Indication: OFF LABEL USE
     Route: 065
  12. VENLAFAXINE HCL [Concomitant]
     Active Substance: VENLAFAXINE HYDROCHLORIDE
     Indication: OFF LABEL USE
  13. JANUVIA [Concomitant]
     Active Substance: SITAGLIPTIN PHOSPHATE
     Indication: OFF LABEL USE
     Route: 065
  14. MYLAN NITRO [Concomitant]
     Active Substance: NITROGLYCERIN
     Indication: OFF LABEL USE
     Route: 060
  15. PANTOPRAZOLE MAGNESIUM [Concomitant]
     Active Substance: PANTOPRAZOLE MAGNESIUM
     Indication: OFF LABEL USE
     Route: 065
  16. QUETIAPINE FUMARATE. [Concomitant]
     Active Substance: QUETIAPINE FUMARATE
     Indication: OFF LABEL USE
     Route: 065

REACTIONS (3)
  - Intentional product use issue [Unknown]
  - Death [Fatal]
  - Off label use [Unknown]

NARRATIVE: CASE EVENT DATE: 20190723
